FAERS Safety Report 24614574 (Version 3)
Quarter: 2025Q1

REPORT INFORMATION
  Report Type: Spontaneous
  Country: JP (occurrence: JP)
  Receive Date: 20241113
  Receipt Date: 20250327
  Transmission Date: 20250408
  Serious: Yes (Other)
  Sender: REGENERON
  Company Number: JP-REGENERON PHARMACEUTICALS, INC.-2024-149637

PATIENT
  Age: 51 Year
  Sex: Female

DRUGS (1)
  1. LIBTAYO [Suspect]
     Active Substance: CEMIPLIMAB-RWLC
     Indication: Cervix carcinoma recurrent
     Dosage: 350 MG, Q3W
     Route: 042

REACTIONS (3)
  - Uveitis [Recovering/Resolving]
  - Deafness [Unknown]
  - Uveitis [Unknown]
